FAERS Safety Report 9289456 (Version 1)
Quarter: 2013Q2

REPORT INFORMATION
  Report Type: Spontaneous
  Country: US (occurrence: US)
  Receive Date: 20130514
  Receipt Date: 20130514
  Transmission Date: 20140414
  Serious: Yes (Hospitalization)
  Sender: FDA-Public Use
  Company Number: US-B.I. PHARMACEUTICALS,INC./RIDGEFIELD-2013-BI-12941BP

PATIENT
  Sex: Female

DRUGS (9)
  1. SPIRIVA [Suspect]
     Indication: ASTHMA
     Dosage: 18 MCG
     Route: 055
     Dates: start: 2009, end: 2011
  2. SPIRIVA [Suspect]
     Dosage: 18 MCG
     Route: 055
     Dates: start: 201211
  3. DULERA [Concomitant]
     Indication: ASTHMA
     Dosage: STRENGTH: 200 MCG / 5 MCG; DAILY DOSE: 400 MCG / 10 MCG
     Route: 055
  4. MONTELUKAST [Concomitant]
     Indication: SEASONAL ALLERGY
     Dosage: 10 MG
     Route: 048
  5. DUONEB [Concomitant]
     Indication: ASTHMA
     Route: 055
  6. FLOVENT HFA [Concomitant]
     Indication: ASTHMA
     Dosage: 240 MCG
     Route: 055
  7. SYNTHROID [Concomitant]
     Indication: HYPOTHYROIDISM
     Dosage: 100 MCG
     Route: 048
  8. CYMBALTA [Concomitant]
     Indication: DEPRESSION
     Route: 048
  9. CYMBALTA [Concomitant]
     Indication: FIBROMYALGIA

REACTIONS (8)
  - Pneumonia [Recovered/Resolved]
  - Pneumonia [Recovered/Resolved]
  - Pneumonia [Recovered/Resolved]
  - Pneumonia [Recovered/Resolved]
  - Primary immunodeficiency syndrome [Not Recovered/Not Resolved]
  - Intraocular pressure increased [Not Recovered/Not Resolved]
  - Muscle spasms [Unknown]
  - Product quality issue [Unknown]
